FAERS Safety Report 9799085 (Version 3)
Quarter: 2015Q3

REPORT INFORMATION
  Report Type: Spontaneous
  Country: US (occurrence: US)
  Receive Date: 20140106
  Receipt Date: 20150806
  Transmission Date: 20151125
  Serious: No
  Sender: FDA-Public Use
  Company Number: US-GILEAD-2010-0033629

PATIENT
  Age: 44 Year
  Sex: Female
  Weight: 78.47 kg

DRUGS (8)
  1. DARUNAVIR [Concomitant]
     Active Substance: DARUNAVIR
  2. MULTIVITAMIN [Concomitant]
     Active Substance: VITAMINS
  3. FLUTICASONE [Concomitant]
     Active Substance: FLUTICASONE\FLUTICASONE PROPIONATE
  4. RALTEGRAVIR. [Concomitant]
     Active Substance: RALTEGRAVIR
  5. CALCIUM [Concomitant]
     Active Substance: CALCIUM
  6. LETAIRIS [Suspect]
     Active Substance: AMBRISENTAN
     Indication: PULMONARY ARTERIAL HYPERTENSION
     Route: 048
     Dates: start: 20100804, end: 20101112
  7. VITAMIN B12 [Concomitant]
     Active Substance: CYANOCOBALAMIN
  8. RITONAVIR. [Concomitant]
     Active Substance: RITONAVIR

REACTIONS (2)
  - Paranasal sinus discomfort [Not Recovered/Not Resolved]
  - Sinus headache [Not Recovered/Not Resolved]

NARRATIVE: CASE EVENT DATE: 201009
